FAERS Safety Report 25884899 (Version 1)
Quarter: 2025Q4

REPORT INFORMATION
  Report Type: Spontaneous
  Country: US (occurrence: None)
  Receive Date: 20251003
  Receipt Date: 20251003
  Transmission Date: 20260119
  Serious: Yes (Death)
  Sender: FDA-CTU
  Company Number: None

PATIENT
  Age: 41 Year
  Sex: Male

DRUGS (17)
  1. ZEPOSIA [Suspect]
     Active Substance: OZANIMOD HYDROCHLORIDE
     Indication: Multiple sclerosis
     Dosage: FREQUENCY : DAILY;?
     Route: 048
     Dates: start: 20250724
  2. ALBUTEROL INH SOL [Concomitant]
  3. ASPIRIN [Concomitant]
     Active Substance: ASPIRIN
  4. ATENOLOL [Concomitant]
     Active Substance: ATENOLOL
  5. BACLOFEN [Concomitant]
     Active Substance: BACLOFEN
  6. DOCUSATE SODIUM [Concomitant]
     Active Substance: DOCUSATE SODIUM
  7. FISH OIL [Concomitant]
     Active Substance: FISH OIL
  8. LISINOPRIL [Concomitant]
     Active Substance: LISINOPRIL
  9. MELATONIN [Concomitant]
     Active Substance: MELATONIN
  10. MEMANTINE [Concomitant]
     Active Substance: MEMANTINE
  11. MULTI-VITAMIN/MINERAL [Concomitant]
  12. TRAZODONE [Concomitant]
     Active Substance: TRAZODONE HYDROCHLORIDE
  13. TYLENOL [Concomitant]
     Active Substance: ACETAMINOPHEN
  14. VITAMIN B-COMPLEX TABLETS [Concomitant]
  15. VITAMIN D1 LIQ SFTGL CAPS [Concomitant]
  16. MULTI FOR HIM [Concomitant]
  17. IBUPROFEN [Concomitant]
     Active Substance: IBUPROFEN

REACTIONS (1)
  - Death [None]

NARRATIVE: CASE EVENT DATE: 20250919
